FAERS Safety Report 7346631-0 (Version None)
Quarter: 2011Q1

REPORT INFORMATION
  Report Type: 
  Country: None (occurrence: None)
  Receive Date: 20110311
  Receipt Date: 20110302
  Transmission Date: 20110831
  Serious: Yes (Hospitalization)
  Sender: FDA-Public Use
  Company Number: IT-BAYER-2011-019964

PATIENT
  Sex: Female

DRUGS (4)
  1. DELTACORTENE [Concomitant]
     Indication: INFECTIVE EXACERBATION OF CHRONIC OBSTRUCTIVE AIRWAYS DISEASE
     Dosage: DAILY DOSE 12.5 MG
     Route: 048
     Dates: start: 20101227, end: 20110103
  2. AVELOX [Suspect]
     Indication: BRONCHOPNEUMOPATHY
     Dosage: 400 MG, QD
     Route: 048
     Dates: start: 20110103, end: 20110103
  3. VASERETIC [Concomitant]
     Indication: HYPERTENSION
     Dosage: DAILY DOSE 32.5 MG
     Route: 048
     Dates: start: 20090101, end: 20110103
  4. ALIFLUS [Concomitant]
     Indication: BRONCHOPNEUMOPATHY
     Dosage: 2 DF, UNK
     Route: 055
     Dates: start: 20090101, end: 20110103

REACTIONS (3)
  - URTICARIA [None]
  - DYSPNOEA [None]
  - CHRONIC OBSTRUCTIVE PULMONARY DISEASE [None]
